FAERS Safety Report 18479056 (Version 1)
Quarter: 2020Q4

REPORT INFORMATION
  Report Type: Report from Study
  Country: CA (occurrence: CA)
  Receive Date: 20201109
  Receipt Date: 20201109
  Transmission Date: 20210114
  Serious: Yes (Other)
  Sender: FDA-Public Use
  Company Number: CA-JNJFOC-20201052076

PATIENT
  Age: 65 Year
  Sex: Female

DRUGS (2)
  1. STELARA [Suspect]
     Active Substance: USTEKINUMAB
  2. STELARA [Suspect]
     Active Substance: USTEKINUMAB
     Indication: PSORIASIS
     Dosage: ON 29/OCT/2020 THE PATIENT RECEIVED 15TH 45MG STELARA INJECTION
     Route: 058
     Dates: start: 20170321

REACTIONS (4)
  - Hypertension [Recovered/Resolved]
  - Paraesthesia [Unknown]
  - Hypotension [Recovered/Resolved]
  - Chest pain [Unknown]

NARRATIVE: CASE EVENT DATE: 20200913
